FAERS Safety Report 8069452-2 (Version None)
Quarter: 2012Q1

REPORT INFORMATION
  Report Type: 
  Country: None (occurrence: None)
  Receive Date: 20120125
  Receipt Date: 20120119
  Transmission Date: 20120608
  Serious: Yes (Life-Threatening)
  Sender: FDA-Public Use
  Company Number: US-SANOFI-AVENTIS-2012SA004972

PATIENT
  Sex: Male

DRUGS (7)
  1. ELOXATIN [Suspect]
     Route: 041
  2. ELOXATIN [Suspect]
     Route: 041
  3. ELOXATIN [Suspect]
     Route: 041
  4. ELOXATIN [Suspect]
     Route: 041
     Dates: start: 20120101, end: 20120101
  5. ELOXATIN [Suspect]
     Route: 041
  6. XELODA [Suspect]
     Route: 048
  7. ELOXATIN [Suspect]
     Route: 041

REACTIONS (1)
  - CARDIO-RESPIRATORY ARREST [None]
